FAERS Safety Report 20201480 (Version 1)
Quarter: 2021Q4

REPORT INFORMATION
  Report Type: Spontaneous
  Country: US (occurrence: US)
  Receive Date: 20211217
  Receipt Date: 20211217
  Transmission Date: 20220304
  Serious: No
  Sender: FDA-Public Use
  Company Number: US-AMNEAL PHARMACEUTICALS-2021-AMRX-03646

PATIENT
  Age: 24 Year
  Sex: Female
  Weight: 68.934 kg

DRUGS (1)
  1. ETHINYL ESTRADIOL\NORELGESTROMIN [Suspect]
     Active Substance: ETHINYL ESTRADIOL\NORELGESTROMIN
     Indication: Product used for unknown indication
     Dosage: 1 DOSAGE FORM, 1 /WEEK
     Route: 062

REACTIONS (3)
  - Vaginal haemorrhage [Unknown]
  - Abdominal pain [Unknown]
  - Product substitution issue [Unknown]
